FAERS Safety Report 10929662 (Version 1)
Quarter: 2015Q1

REPORT INFORMATION
  Report Type: Spontaneous
  Country: US (occurrence: US)
  Receive Date: 20150319
  Receipt Date: 20150319
  Transmission Date: 20150721
  Serious: Yes (Other)
  Sender: FDA-Public Use
  Company Number: US-PFIZER INC-2015092377

PATIENT
  Age: 52 Year
  Sex: Female
  Weight: 75 kg

DRUGS (6)
  1. DOXORUBICIN HCL [Suspect]
     Active Substance: DOXORUBICIN HYDROCHLORIDE
     Indication: NEOPLASM MALIGNANT
     Dosage: UNK, FOR 4 TIMES
  2. AMBIEN [Concomitant]
     Active Substance: ZOLPIDEM TARTRATE
     Indication: INSOMNIA
     Dosage: UNK
     Route: 048
  3. TAXOL [Suspect]
     Active Substance: PACLITAXEL
     Indication: NEOPLASM MALIGNANT
     Dosage: UNK
     Dates: start: 20140209, end: 20140623
  4. TAMOXIFEN [Concomitant]
     Active Substance: TAMOXIFEN
  5. XANAX [Concomitant]
     Active Substance: ALPRAZOLAM
     Indication: ANXIETY
     Dosage: 2 MG, X 6 HOURS
     Route: 048
  6. OXYCODONE [Concomitant]
     Active Substance: OXYCODONE
     Indication: PAIN
     Dosage: 10 MG, DAILY
     Route: 048

REACTIONS (6)
  - Loss of consciousness [Unknown]
  - Neuropathy peripheral [Not Recovered/Not Resolved]
  - Eye disorder [Not Recovered/Not Resolved]
  - Libido decreased [Unknown]
  - Road traffic accident [Unknown]
  - Onychomadesis [Recovered/Resolved]

NARRATIVE: CASE EVENT DATE: 201402
